FAERS Safety Report 5705211-0 (Version None)
Quarter: 2008Q2

REPORT INFORMATION
  Report Type: 
  Country: None (occurrence: None)
  Receive Date: 20080410
  Receipt Date: 20080407
  Transmission Date: 20081010
  Serious: Yes (Life-Threatening)
  Sender: FDA-Public Use
  Company Number: E2020-02104-SPO-JP

PATIENT
  Sex: Male

DRUGS (1)
  1. ARICEPT [Suspect]
     Indication: DEMENTIA ALZHEIMER'S TYPE
     Dosage: 5 MG, 1 IN 1 D, ORAL
     Route: 048
     Dates: end: 20071201

REACTIONS (6)
  - ALTERED STATE OF CONSCIOUSNESS [None]
  - COMA [None]
  - DYSPHAGIA [None]
  - SHOCK [None]
  - VITAMIN B1 DEFICIENCY [None]
  - WERNICKE'S ENCEPHALOPATHY [None]
